FAERS Safety Report 9464710 (Version 4)
Quarter: 2013Q4

REPORT INFORMATION
  Report Type: Spontaneous
  Country: US (occurrence: US)
  Receive Date: 20130819
  Receipt Date: 20131121
  Transmission Date: 20140711
  Serious: No
  Sender: FDA-Public Use
  Company Number: US-PFIZER INC-2013238024

PATIENT
  Age: 36 Year
  Sex: Female
  Weight: 60.77 kg

DRUGS (7)
  1. XELJANZ [Suspect]
     Indication: RHEUMATOID ARTHRITIS
     Dosage: 5 MG, 2X/DAY
     Route: 048
     Dates: start: 20130729
  2. ORENCIA [Suspect]
     Dosage: UNK
  3. VITAMIN D [Concomitant]
     Dosage: 50000 IU, UNK
  4. VITAMIN C [Concomitant]
     Dosage: 500 MG, UNK
  5. VITAMIN A [Concomitant]
     Dosage: 8000 IU, UNK
  6. OMEGA 3 [Concomitant]
     Dosage: 340 MG, UNK
  7. SIMVASTATIN [Concomitant]
     Dosage: 20 MG, UNK

REACTIONS (4)
  - Pain in extremity [Unknown]
  - Arthralgia [Unknown]
  - Toothache [Unknown]
  - Acne [Recovering/Resolving]
